FAERS Safety Report 21373416 (Version 1)
Quarter: 2022Q3

REPORT INFORMATION
  Report Type: Spontaneous
  Country: US (occurrence: US)
  Receive Date: 20220925
  Receipt Date: 20220925
  Transmission Date: 20221027
  Serious: Yes (Other)
  Sender: FDA-Public Use
  Company Number: US-MERCK-1405USA002400

PATIENT
  Sex: Female
  Weight: 55.329 kg

DRUGS (5)
  1. FOSAMAX [Suspect]
     Active Substance: ALENDRONATE SODIUM
     Indication: Osteoporosis
     Dosage: 10 MG, QD
     Route: 048
     Dates: start: 199708
  2. FOSAMAX [Suspect]
     Active Substance: ALENDRONATE SODIUM
     Dosage: 70 MG, QW
     Route: 048
     Dates: end: 200708
  3. SYNTHROID [Concomitant]
     Active Substance: LEVOTHYROXINE SODIUM
     Indication: Hyperthyroidism
     Dosage: 80 MICROGRAM
     Route: 048
     Dates: start: 1994
  4. ALBUTEROL SULFATE [Concomitant]
     Active Substance: ALBUTEROL SULFATE
     Indication: Asthma
     Dosage: SPRAY
     Route: 055
     Dates: start: 1991
  5. CALCIUM;VITAMIN D NOS [Concomitant]
     Indication: Product used for unknown indication
     Dosage: UNK
     Route: 048
     Dates: start: 1997

REACTIONS (16)
  - Intraductal proliferative breast lesion [Unknown]
  - Femur fracture [Recovering/Resolving]
  - Osteoporosis [Unknown]
  - Tooth disorder [Unknown]
  - Dental plaque [Unknown]
  - Tooth deposit [Unknown]
  - Dental caries [Unknown]
  - Glucose tolerance impaired [Unknown]
  - Dental restoration failure [Unknown]
  - Tooth restoration [Unknown]
  - Biopsy breast [Unknown]
  - Endometriosis [Unknown]
  - Synovial cyst [Unknown]
  - Joint effusion [Unknown]
  - Tendon disorder [Unknown]
  - Osteoarthritis [Unknown]

NARRATIVE: CASE EVENT DATE: 20020801
